FAERS Safety Report 18884204 (Version 2)
Quarter: 2021Q2

REPORT INFORMATION
  Report Type: Spontaneous
  Country: US (occurrence: US)
  Receive Date: 20210211
  Receipt Date: 20210408
  Transmission Date: 20210717
  Serious: No
  Sender: FDA-Public Use
  Company Number: US-ASTRAZENECA-2021A021480

PATIENT
  Sex: Female
  Weight: 52.2 kg

DRUGS (7)
  1. VITAMIN E [Concomitant]
     Active Substance: .ALPHA.-TOCOPHEROL
     Indication: VITAMIN SUPPLEMENTATION
     Route: 048
  2. AMLODIPINE [Concomitant]
     Active Substance: AMLODIPINE BESYLATE
     Indication: HYPERTENSION
     Route: 048
     Dates: start: 2015
  3. VITAMIN B COMPLEX [Concomitant]
     Active Substance: CYANOCOBALAMIN\DEXPANTHENOL\NIACINAMIDE\PYRIDOXINE HYDROCHLORIDE\RIBOFLAVIN 5^-PHOSPHATE SODIUM\THIAMINE HYDROCHLORIDE\VITAMIN B COMPLEX
     Indication: VITAMIN SUPPLEMENTATION
     Route: 048
  4. VITAMIN D [Concomitant]
     Active Substance: VITAMIN D NOS
     Indication: VITAMIN SUPPLEMENTATION
     Route: 048
  5. SYMBICORT [Suspect]
     Active Substance: BUDESONIDE\FORMOTEROL FUMARATE DIHYDRATE
     Indication: CHRONIC SINUSITIS
     Dosage: 160/4.5 MCGS TWO PUFF TWO TIMES A DAY
     Route: 055
     Dates: start: 202001
  6. VITAMIN D3 [Concomitant]
     Active Substance: CHOLECALCIFEROL
     Indication: VITAMIN SUPPLEMENTATION
     Route: 048
  7. PROBIOTICS [Concomitant]
     Active Substance: PROBIOTICS NOS
     Indication: SUPPLEMENTATION THERAPY
     Route: 048

REACTIONS (8)
  - Pruritus [Unknown]
  - Product taste abnormal [Unknown]
  - Dysphonia [Unknown]
  - Cough [Unknown]
  - Oropharyngeal pain [Unknown]
  - Intentional device misuse [Unknown]
  - Hypersensitivity [Unknown]
  - Wrong technique in device usage process [Unknown]
